FAERS Safety Report 4681502-X (Version None)
Quarter: 2005Q2

REPORT INFORMATION
  Report Type: 
  Country: None (occurrence: None)
  Receive Date: 20050602
  Receipt Date: 20050520
  Transmission Date: 20051028
  Serious: Yes (Hospitalization, Other)
  Sender: FDA-Public Use
  Company Number: 2005056674

PATIENT
  Age: 41 Year
  Sex: Male

DRUGS (4)
  1. TIKOSYN [Suspect]
     Indication: ATRIAL FIBRILLATION
     Dosage: 1000 MCG (500 MCG, 2 IN 1 D ORAL)
     Route: 048
     Dates: start: 20050101, end: 20050101
  2. NEXIUM [Concomitant]
  3. BENICAR (OLMESARTAN MEDOMOXIL) [Concomitant]
  4. CUMADIN (WARFARIN SODIUM) [Concomitant]

REACTIONS (16)
  - ASTHENIA [None]
  - BLOOD CHOLESTEROL INCREASED [None]
  - BLOOD MAGNESIUM INCREASED [None]
  - BLOOD TRIGLYCERIDES INCREASED [None]
  - DIZZINESS [None]
  - ELECTROCARDIOGRAM ABNORMAL [None]
  - ELECTROCARDIOGRAM QT CORRECTED INTERVAL PROLONGED [None]
  - FATIGUE [None]
  - HEART RATE INCREASED [None]
  - HIGH DENSITY LIPOPROTEIN DECREASED [None]
  - HYPERTENSION [None]
  - HYPOAESTHESIA [None]
  - LOSS OF CONSCIOUSNESS [None]
  - PARAESTHESIA [None]
  - VENTRICULAR EXTRASYSTOLES [None]
  - VENTRICULAR TACHYCARDIA [None]
